FAERS Safety Report 9169141 (Version 1)
Quarter: 2013Q1

REPORT INFORMATION
  Report Type: Spontaneous
  Country: DE (occurrence: DE)
  Receive Date: 20130318
  Receipt Date: 20130318
  Transmission Date: 20140127
  Serious: Yes (Hospitalization)
  Sender: FDA-Public Use
  Company Number: DE-VIIV HEALTHCARE LIMITED-D0079131A

PATIENT
  Age: 27 Year
  Sex: 0

DRUGS (7)
  1. KIVEXA [Suspect]
     Indication: HIV INFECTION
     Route: 048
     Dates: start: 2011
  2. TRUVADA [Suspect]
     Indication: HIV INFECTION
     Route: 048
     Dates: start: 201301
  3. ISENTRESS [Suspect]
     Indication: HIV INFECTION
     Dosage: 400MG PER DAY
     Route: 048
     Dates: start: 2011
  4. PREZISTA [Suspect]
     Indication: HIV INFECTION
     Route: 048
     Dates: start: 2011
  5. NORVIR [Suspect]
     Indication: HIV INFECTION
     Route: 048
     Dates: start: 2011
  6. COMBIVIR [Suspect]
     Indication: HIV INFECTION
     Route: 065
  7. KALETRA [Suspect]
     Indication: HIV INFECTION
     Route: 065

REACTIONS (3)
  - Genotype drug resistance test positive [Not Recovered/Not Resolved]
  - Drug ineffective [Unknown]
  - Drug resistance [Unknown]
